FAERS Safety Report 5558059-4 (Version None)
Quarter: 2007Q4

REPORT INFORMATION
  Report Type: 
  Country: None (occurrence: None)
  Receive Date: 20071214
  Receipt Date: 20071127
  Transmission Date: 20080405
  Serious: Yes (Other)
  Sender: FDA-Public Use
  Company Number: CA-RANBAXY-2007US-11854

PATIENT

DRUGS (2)
  1. MINOCYCLINE HYDROCHLORIDE [Suspect]
     Indication: ACNE
  2. TETRACYCLINE [Concomitant]

REACTIONS (4)
  - LUPUS-LIKE SYNDROME [None]
  - MUSCULOSKELETAL STIFFNESS [None]
  - POLYARTHRITIS [None]
  - PYREXIA [None]
